FAERS Safety Report 8802513 (Version 1)
Quarter: 2012Q4

REPORT INFORMATION
  Report Type: 
  Country: US (occurrence: US)
  Receive Date: 20120921
  Receipt Date: 20120921
  Transmission Date: 20130627
  Serious: No
  Sender: FDA-Public Use
  Company Number: US-009507513-1209USA007213

PATIENT
  Sex: Male

DRUGS (2)
  1. PEG-INTRON [Suspect]
     Dosage: UNK
     Route: 058
     Dates: start: 201208
  2. RIBASPHERE [Suspect]

REACTIONS (1)
  - Genital rash [Unknown]
